FAERS Safety Report 9378652 (Version 2)
Quarter: 2013Q3

REPORT INFORMATION
  Report Type: Spontaneous
  Country: IT (occurrence: IT)
  Receive Date: 20130702
  Receipt Date: 20130919
  Transmission Date: 20140515
  Serious: Yes (Other)
  Sender: FDA-Public Use
  Company Number: IT-RANBAXY-2013R1-70610

PATIENT
  Age: 30 Year
  Sex: Female

DRUGS (1)
  1. AMOXICILLIN [Suspect]
     Indication: THERMAL BURN
     Dosage: 1000MG ALL AT THE SAME TIME
     Route: 048
     Dates: start: 20130612, end: 20130612

REACTIONS (4)
  - Oedema [Recovered/Resolved]
  - Urticaria [Recovered/Resolved]
  - Pruritus generalised [Recovered/Resolved]
  - Chest discomfort [Recovered/Resolved]
